FAERS Safety Report 6044151-7 (Version None)
Quarter: 2009Q1

REPORT INFORMATION
  Report Type: 
  Country: None (occurrence: None)
  Receive Date: 20090120
  Receipt Date: 20090112
  Transmission Date: 20090719
  Serious: Yes (Hospitalization)
  Sender: FDA-Public Use
  Company Number: US-ELI_LILLY_AND_COMPANY-US200901002247

PATIENT
  Sex: Male

DRUGS (3)
  1. HUMALOG [Suspect]
  2. LANTUS [Concomitant]
  3. PLAVIX [Concomitant]

REACTIONS (11)
  - ANXIETY [None]
  - BLOOD GLUCOSE DECREASED [None]
  - BLOOD GLUCOSE INCREASED [None]
  - CATARACT [None]
  - DEPRESSED MOOD [None]
  - DRUG INEFFECTIVE [None]
  - MALAISE [None]
  - NASOPHARYNGITIS [None]
  - NERVOUSNESS [None]
  - STENT PLACEMENT [None]
  - VISUAL ACUITY REDUCED [None]
